FAERS Safety Report 11447304 (Version 1)
Quarter: 2015Q3

REPORT INFORMATION
  Report Type: Spontaneous
  Country: US (occurrence: US)
  Receive Date: 20150831
  Receipt Date: 20150831
  Transmission Date: 20151125
  Serious: Yes (Other)
  Sender: FDA-Public Use
  Company Number: US-ELI_LILLY_AND_COMPANY-US200903005252

PATIENT
  Age: 50 Year
  Sex: Male

DRUGS (2)
  1. ULTRAM [Concomitant]
     Active Substance: TRAMADOL HYDROCHLORIDE
     Dosage: 50 MG, EVERY 6 HRS
  2. CYMBALTA [Suspect]
     Active Substance: DULOXETINE HYDROCHLORIDE
     Indication: DEPRESSION
     Dosage: 60 MG, UNK

REACTIONS (3)
  - Muscle rigidity [Recovered/Resolved]
  - Serotonin syndrome [Recovered/Resolved]
  - Tachycardia [Recovered/Resolved]
